FAERS Safety Report 7652325-4 (Version None)
Quarter: 2011Q3

REPORT INFORMATION
  Report Type: 
  Country: None (occurrence: None)
  Receive Date: 20110727
  Receipt Date: 20110727
  Transmission Date: 20111222
  Serious: No
  Sender: FDA-Public Use
  Company Number: None

PATIENT
  Sex: Female
  Weight: 69.4003 kg

DRUGS (1)
  1. GABAPENTIN [Suspect]
     Indication: NEURALGIA
     Dosage: 300 MG DEAR MILLIGRAMS P.O. BID
     Route: 048
     Dates: start: 20110712, end: 20110726

REACTIONS (3)
  - MEMORY IMPAIRMENT [None]
  - PANIC ATTACK [None]
  - CONFUSIONAL STATE [None]
